FAERS Safety Report 15302462 (Version 1)
Quarter: 2018Q3

REPORT INFORMATION
  Report Type: Spontaneous
  Country: DK (occurrence: DK)
  Receive Date: 20180821
  Receipt Date: 20180821
  Transmission Date: 20181010
  Serious: Yes (Hospitalization)
  Sender: FDA-Public Use
  Company Number: PHHY2018DK074030

PATIENT
  Age: 44 Year
  Sex: Male

DRUGS (3)
  1. METHOTREXATE (METHOTREXATE SODIUM) [Suspect]
     Active Substance: METHOTREXATE SODIUM
     Indication: PSORIASIS
     Dosage: 7.5 MG, QD (STYRKE: 2.5)
     Route: 048
     Dates: start: 20141212
  2. HUMIRA [Suspect]
     Active Substance: ADALIMUMAB
     Indication: PSORIASIS
     Dosage: 40 MG, Q2W
     Route: 058
     Dates: start: 20130503
  3. FOLIMET [Concomitant]
     Indication: ADVERSE DRUG REACTION
     Dosage: 5 MG, QW
     Route: 048
     Dates: start: 20150417

REACTIONS (3)
  - Acute myocardial infarction [Recovered/Resolved]
  - Pain in jaw [Recovering/Resolving]
  - Chest pain [Recovered/Resolved]

NARRATIVE: CASE EVENT DATE: 20180101
